FAERS Safety Report 24028926 (Version 1)
Quarter: 2024Q2

REPORT INFORMATION
  Report Type: Spontaneous
  Country: US (occurrence: US)
  Receive Date: 20240628
  Receipt Date: 20240628
  Transmission Date: 20240716
  Serious: No
  Sender: FDA-Public Use
  Company Number: US-SA-SAC20240621000990

PATIENT
  Sex: Male
  Weight: 63.039 kg

DRUGS (5)
  1. DUPIXENT [Suspect]
     Active Substance: DUPILUMAB
     Indication: Dermatitis atopic
     Dosage: 300 MG, QOW
     Route: 058
     Dates: start: 202003
  2. CLONAZEPAM [Concomitant]
     Active Substance: CLONAZEPAM
  3. LISINOPRIL [Concomitant]
     Active Substance: LISINOPRIL
  4. CLOBETASOL PROPIONATE [Concomitant]
     Active Substance: CLOBETASOL PROPIONATE
  5. ISOTRETINOIN [Concomitant]
     Active Substance: ISOTRETINOIN

REACTIONS (2)
  - Abdominal discomfort [Not Recovered/Not Resolved]
  - Eating disorder [Not Recovered/Not Resolved]
